FAERS Safety Report 16803921 (Version 2)
Quarter: 2020Q1

REPORT INFORMATION
  Report Type: Spontaneous
  Country: US (occurrence: US)
  Receive Date: 20190913
  Receipt Date: 20200318
  Transmission Date: 20200409
  Serious: Yes (Hospitalization, Other)
  Sender: FDA-Public Use
  Company Number: US-ASTRAZENECA-2019SF28877

PATIENT
  Age: 22900 Day
  Sex: Female
  Weight: 89.8 kg

DRUGS (38)
  1. IBUPROFEN. [Concomitant]
     Active Substance: IBUPROFEN
     Indication: NEPHROLITHIASIS
     Route: 065
     Dates: start: 2008
  2. METHOCARBAMOL. [Concomitant]
     Active Substance: METHOCARBAMOL
  3. NASONEX [Concomitant]
     Active Substance: MOMETASONE FUROATE
  4. ACYCLOVIR. [Concomitant]
     Active Substance: ACYCLOVIR
  5. SPIRONOLACTONE. [Concomitant]
     Active Substance: SPIRONOLACTONE
     Route: 065
     Dates: start: 2008
  6. AZITHROMYCIN ANHYDROUS. [Concomitant]
     Active Substance: AZITHROMYCIN ANHYDROUS
  7. CELEBREX [Concomitant]
     Active Substance: CELECOXIB
  8. ALLOPURINOL. [Concomitant]
     Active Substance: ALLOPURINOL
     Route: 065
     Dates: start: 2016
  9. POTASSIUM [Concomitant]
     Active Substance: POTASSIUM
     Indication: BLOOD POTASSIUM DECREASED
     Route: 065
     Dates: start: 2008
  10. CLONAZEPAM. [Concomitant]
     Active Substance: CLONAZEPAM
     Indication: SEIZURE
     Route: 065
     Dates: start: 2008
  11. METHOTREXATE. [Concomitant]
     Active Substance: METHOTREXATE
  12. LIDODERM [Concomitant]
     Active Substance: LIDOCAINE
  13. BYSTOLIC [Concomitant]
     Active Substance: NEBIVOLOL HYDROCHLORIDE
     Indication: HYPERTENSION
     Route: 065
     Dates: start: 2016
  14. TUMS [Concomitant]
     Active Substance: CALCIUM CARBONATE
     Indication: GASTROOESOPHAGEAL REFLUX DISEASE
     Route: 065
     Dates: start: 2008, end: 2010
  15. OMEPRAZOLE. [Suspect]
     Active Substance: OMEPRAZOLE
     Indication: GASTROOESOPHAGEAL REFLUX DISEASE
     Route: 048
     Dates: start: 20120501, end: 20121128
  16. GABAPENTIN. [Concomitant]
     Active Substance: GABAPENTIN
     Route: 065
     Dates: start: 2008
  17. SUMATRIPTAN. [Concomitant]
     Active Substance: SUMATRIPTAN
  18. CIPROFLOXACIN. [Concomitant]
     Active Substance: CIPROFLOXACIN
  19. TRAMADOL. [Concomitant]
     Active Substance: TRAMADOL
  20. METHYLPREDNISOLONE. [Concomitant]
     Active Substance: METHYLPREDNISOLONE
  21. TRIAMCINOLONE [Concomitant]
     Active Substance: TRIAMCINOLONE
  22. CLINDAMYCIN. [Concomitant]
     Active Substance: CLINDAMYCIN
  23. COLCRYS [Concomitant]
     Active Substance: COLCHICINE
  24. MAGNESIUM [Concomitant]
     Active Substance: MAGNESIUM
     Indication: BLOOD MAGNESIUM DECREASED
     Route: 065
     Dates: start: 2008
  25. NEXIUM [Suspect]
     Active Substance: ESOMEPRAZOLE MAGNESIUM
     Indication: GASTROOESOPHAGEAL REFLUX DISEASE
     Dosage: GENERIC
     Route: 065
     Dates: start: 20160408, end: 20160922
  26. OMEPRAZOLE. [Suspect]
     Active Substance: OMEPRAZOLE
     Indication: GASTROOESOPHAGEAL REFLUX DISEASE
     Dosage: GENERIC
     Route: 065
     Dates: start: 20100913, end: 20160310
  27. HYDROCODON [Concomitant]
     Active Substance: HYDROCODONE
  28. KLOR-CON [Concomitant]
     Active Substance: POTASSIUM CHLORIDE
  29. PILOCARPINE. [Concomitant]
     Active Substance: PILOCARPINE
     Indication: SJOGREN^S SYNDROME
     Route: 065
     Dates: start: 2008
  30. FUROSEMIDE. [Concomitant]
     Active Substance: FUROSEMIDE
     Route: 065
     Dates: start: 2008
  31. ACETAMINOPHEN. [Concomitant]
     Active Substance: ACETAMINOPHEN
  32. NEXIUM [Suspect]
     Active Substance: ESOMEPRAZOLE MAGNESIUM
     Indication: GASTROOESOPHAGEAL REFLUX DISEASE
     Route: 048
     Dates: start: 20100913, end: 20160310
  33. OXYCODONE [Concomitant]
     Active Substance: OXYCODONE
  34. LYRICA [Concomitant]
     Active Substance: PREGABALIN
  35. LORAZEPAM. [Concomitant]
     Active Substance: LORAZEPAM
  36. AVELOX [Concomitant]
     Active Substance: MOXIFLOXACIN HYDROCHLORIDE
  37. NAPROXEN. [Concomitant]
     Active Substance: NAPROXEN
  38. MELOXICAM. [Concomitant]
     Active Substance: MELOXICAM

REACTIONS (2)
  - Acute kidney injury [Not Recovered/Not Resolved]
  - Renal failure [Not Recovered/Not Resolved]

NARRATIVE: CASE EVENT DATE: 20140609
